FAERS Safety Report 14138649 (Version 1)
Quarter: 2017Q4

REPORT INFORMATION
  Report Type: Spontaneous
  Country: GB (occurrence: GB)
  Receive Date: 20171027
  Receipt Date: 20171027
  Transmission Date: 20180321
  Serious: Yes (Hospitalization, Disabling, Other)
  Sender: FDA-Public Use
  Company Number: GB-ABBVIE-17P-167-2144603-00

PATIENT
  Sex: Female

DRUGS (2)
  1. EPILIM [Suspect]
     Active Substance: VALPROATE SODIUM
     Indication: PETIT MAL EPILEPSY
     Route: 048
     Dates: start: 197408
  2. EPILIM [Suspect]
     Active Substance: VALPROATE SODIUM
     Route: 048

REACTIONS (9)
  - Caesarean section [Unknown]
  - Type 2 diabetes mellitus [Unknown]
  - Ectopic pregnancy [Recovered/Resolved]
  - Beta haemolytic streptococcal infection [Recovered/Resolved]
  - Abortion spontaneous [Unknown]
  - Gestational diabetes [Recovered/Resolved]
  - Polycystic ovaries [Unknown]
  - Exposure during pregnancy [Unknown]
  - Stillbirth [Unknown]

NARRATIVE: CASE EVENT DATE: 1996
